FAERS Safety Report 5443170-9 (Version None)
Quarter: 2007Q3

REPORT INFORMATION
  Report Type: 
  Country: None (occurrence: None)
  Receive Date: 20070730
  Receipt Date: 20061214
  Transmission Date: 20080115
  Serious: Yes (Hospitalization)
  Sender: FDA-Public Use
  Company Number: 233952

PATIENT
  Age: 76 Year
  Sex: Female

DRUGS (3)
  1. RITUXAN [Suspect]
     Indication: NON-HODGKIN'S LYMPHOMA
     Dosage: 275 MG/M, SINGLE, INTRAVENOUS
     Route: 042
     Dates: start: 20060504, end: 20060505
  2. CENTRUM (MINERALS NOS, MULTIVITAMINS NOS) [Concomitant]
  3. IRON SUPPLEMENT (IRON NOS) [Concomitant]

REACTIONS (2)
  - PANCYTOPENIA [None]
  - PYREXIA [None]
